FAERS Safety Report 7171708-2 (Version None)
Quarter: 2010Q4

REPORT INFORMATION
  Report Type: 
  Country: None (occurrence: None)
  Receive Date: 20101217
  Receipt Date: 20100126
  Transmission Date: 20110411
  Serious: No
  Sender: FDA-Public Use
  Company Number: US-AMGEN-KDL388596

PATIENT

DRUGS (7)
  1. ENBREL [Suspect]
     Indication: RHEUMATOID ARTHRITIS
     Dosage: 50 MG, QWK
     Route: 058
     Dates: start: 20100114, end: 20100129
  2. ATENOLOL [Concomitant]
  3. ESCITALOPRAM [Concomitant]
  4. AMITRIPTYLINE HCL [Concomitant]
  5. LANSOPRAZOLE [Concomitant]
  6. CELECOXIB [Concomitant]
  7. ACETYLSALICYLIC ACID [Concomitant]
     Dosage: UNK UNK, UNK

REACTIONS (2)
  - ABDOMINAL DISCOMFORT [None]
  - MUSCLE TWITCHING [None]
